FAERS Safety Report 17679380 (Version 1)
Quarter: 2020Q2

REPORT INFORMATION
  Report Type: Spontaneous
  Country: NL (occurrence: NL)
  Receive Date: 20200417
  Receipt Date: 20200417
  Transmission Date: 20200714
  Serious: Yes (Life-Threatening, Hospitalization)
  Sender: FDA-Public Use
  Company Number: NL-TEVA-2020-NL-1223674

PATIENT
  Age: 55 Year
  Sex: Female
  Weight: 93.2 kg

DRUGS (6)
  1. PREDNISOLON [Concomitant]
     Active Substance: PREDNISOLONE
     Dosage: CAPSULE, 15 MG (MILLIGRAM)
  2. NOVORAPID (INSULINE ASPART) [Concomitant]
     Dosage: INJECTION LIQUID, 100 UNITS / ML (UNITS PER MILLILITER)
  3. AZITHROMYCINE [Suspect]
     Active Substance: AZITHROMYCIN
     Indication: DEVICE RELATED INFECTION
     Dosage: 500 MILLIGRAM DAILY; 1 PIECE ONCE A DAY
     Dates: start: 20191009, end: 20191011
  4. LOPERAMIDE [Concomitant]
     Active Substance: LOPERAMIDE
     Dosage: CAPSULE, 2 MG (MILLIGRAM)
  5. FUROSEMIDE. [Concomitant]
     Active Substance: FUROSEMIDE
     Dosage: 40 MG (MILLIGRAM)
  6. AZITHROMYCINE [Suspect]
     Active Substance: AZITHROMYCIN
     Indication: DIARRHOEA

REACTIONS (2)
  - Thrombocytopenia [Unknown]
  - Hepatic enzyme abnormal [Unknown]

NARRATIVE: CASE EVENT DATE: 20191011
